FAERS Safety Report 9147224 (Version 2)
Quarter: 2013Q2

REPORT INFORMATION
  Report Type: Report from Study
  Country: FR (occurrence: FR)
  Receive Date: 20130307
  Receipt Date: 20130403
  Transmission Date: 20140414
  Serious: Yes (Hospitalization, Other)
  Sender: FDA-Public Use
  Company Number: FR-PFIZER INC-2012222609

PATIENT
  Age: 49 Year
  Sex: Male

DRUGS (11)
  1. BLINDED PLACEBO [Suspect]
     Indication: HEPATIC CANCER
     Dosage: CYCLIC
     Dates: start: 20120326
  2. SUNITINIB MALATE [Suspect]
     Indication: HEPATIC CANCER
     Dosage: CYCLIC
     Dates: start: 20120326
  3. BLINDED PLACEBO [Suspect]
     Dosage: 262.5 MG, TOTAL
     Dates: start: 20120806, end: 20120827
  4. SUNITINIB MALATE [Suspect]
     Dosage: 262.5 MG, TOTAL
     Dates: start: 20120806, end: 20120827
  5. DOXORUBICIN HCL [Suspect]
     Indication: HEPATIC CANCER
     Dosage: 150 MG, CYCLIC
     Dates: start: 20120403, end: 20120712
  6. COVERSYL [Concomitant]
     Indication: HYPERTENSION
     Dosage: 5 MG, 1X/DAY
  7. TRAMADOL [Concomitant]
     Indication: PAIN
     Dosage: 50 MG, 1X/DAY
     Dates: start: 20120801
  8. LASILIX [Concomitant]
     Indication: PROPHYLAXIS
     Dosage: 20 MG, 1X/DAY
     Dates: start: 20120620
  9. DIFFU K [Concomitant]
     Indication: PROPHYLAXIS
     Dosage: UNK, 2X/DAY
     Dates: start: 20120716
  10. PANTOPRAZOLE [Concomitant]
     Indication: PROPHYLAXIS
     Dosage: 20 MG, 1X/DAY
  11. MOVICOL [Concomitant]
     Indication: CONSTIPATION
     Dosage: 2 DF, 1X/DAY
     Dates: start: 20120801

REACTIONS (2)
  - Anaemia [Recovered/Resolved]
  - Gastric haemorrhage [Recovered/Resolved]
